FAERS Safety Report 10005428 (Version 1)
Quarter: 2014Q1

REPORT INFORMATION
  Report Type: Spontaneous
  Country: US (occurrence: US)
  Receive Date: 20140312
  Receipt Date: 20140312
  Transmission Date: 20141002
  Serious: No
  Sender: FDA-Public Use
  Company Number: US-ASTRAZENECA-2013SE85964

PATIENT
  Sex: Male

DRUGS (2)
  1. CASODEX [Suspect]
     Indication: PROSTATIC SPECIFIC ANTIGEN INCREASED
     Dosage: DAILY
     Route: 048
     Dates: start: 2013
  2. ELIGARD [Concomitant]
     Indication: PROSTATE CANCER
     Dosage: UNKNOWN Q4MONTHS
     Route: 050

REACTIONS (1)
  - Eczema [Unknown]
